FAERS Safety Report 24319547 (Version 2)
Quarter: 2024Q3

REPORT INFORMATION
  Report Type: Spontaneous
  Country: GB (occurrence: GB)
  Receive Date: 20240914
  Receipt Date: 20240921
  Transmission Date: 20241016
  Serious: Yes (Hospitalization, Other)
  Sender: TEVA
  Company Number: GB-009507513-2311GBR011281

PATIENT
  Sex: Female
  Weight: 89 kg

DRUGS (40)
  1. CARBOPLATIN [Suspect]
     Active Substance: CARBOPLATIN
     Indication: Diffuse large B-cell lymphoma
     Dosage: 450 MILLIGRAM
     Route: 065
     Dates: start: 20231117, end: 20231117
  2. CARBOPLATIN [Suspect]
     Active Substance: CARBOPLATIN
     Indication: Diffuse large B-cell lymphoma
     Dosage: 450 MILLIGRAM
     Route: 065
     Dates: start: 20231208, end: 20231208
  3. CARBOPLATIN [Suspect]
     Active Substance: CARBOPLATIN
     Indication: Diffuse large B-cell lymphoma
     Dosage: 330 MILLIGRAM
     Route: 065
     Dates: start: 20231230, end: 20231230
  4. TRESIBA [Concomitant]
     Active Substance: INSULIN DEGLUDEC
     Dosage: TOTAL DAILY DOSE: VARIABLE 200 UNITS/ML
     Route: 058
     Dates: start: 20181129, end: 20240301
  5. DAPAGLIFLOZIN [Concomitant]
     Active Substance: DAPAGLIFLOZIN
     Route: 048
     Dates: start: 20210113, end: 20240213
  6. GRANULOCYTE COLONY-STIMULATING FACTOR NOS [Suspect]
     Active Substance: GRANULOCYTE COLONY-STIMULATING FACTOR NOS
     Indication: Diffuse large B-cell lymphoma
     Dosage: 30 MU
     Route: 065
     Dates: start: 20231124, end: 20240226
  7. POTASSIUM [Concomitant]
     Active Substance: POTASSIUM
     Dosage: UNK
  8. IFOSFAMIDE [Suspect]
     Active Substance: IFOSFAMIDE
     Indication: Diffuse large B-cell lymphoma
     Dosage: 4480 MILLIGRAM
     Route: 065
     Dates: start: 20231117, end: 20231117
  9. IFOSFAMIDE [Suspect]
     Active Substance: IFOSFAMIDE
     Indication: Diffuse large B-cell lymphoma
     Dosage: 4480 MILLIGRAM
     Route: 065
     Dates: start: 20231210, end: 20231210
  10. IFOSFAMIDE [Suspect]
     Active Substance: IFOSFAMIDE
     Indication: Diffuse large B-cell lymphoma
     Dosage: 4480 MILLIGRAM
     Route: 065
     Dates: start: 20240101, end: 20240101
  11. GLUCOPHAGE [Concomitant]
     Active Substance: METFORMIN HYDROCHLORIDE
     Route: 048
     Dates: start: 20161124, end: 20240301
  12. ETOPOSIDE [Suspect]
     Active Substance: ETOPOSIDE
     Indication: Diffuse large B-cell lymphoma
     Dosage: 180 MILLIGRAM
     Route: 065
     Dates: start: 20231210, end: 20231210
  13. ETOPOSIDE [Suspect]
     Active Substance: ETOPOSIDE
     Indication: Diffuse large B-cell lymphoma
     Dosage: 180 MILLIGRAM
     Route: 065
     Dates: start: 20231231, end: 20231231
  14. ETOPOSIDE [Suspect]
     Active Substance: ETOPOSIDE
     Indication: Diffuse large B-cell lymphoma
     Dosage: 296 MILLIGRAM
     Route: 065
     Dates: start: 20240209, end: 20240214
  15. ETOPOSIDE [Suspect]
     Active Substance: ETOPOSIDE
     Indication: Diffuse large B-cell lymphoma
     Dosage: 180 MILLIGRAM
     Route: 065
     Dates: start: 20231118, end: 20231118
  16. OMEPRAZOLE [Concomitant]
     Active Substance: OMEPRAZOLE
     Route: 048
     Dates: start: 20230821, end: 20240303
  17. INDAPAMIDE [Concomitant]
     Active Substance: INDAPAMIDE
     Route: 048
     Dates: start: 20180730, end: 20240208
  18. ONDANSETRON HYDROCHLORIDE [Concomitant]
     Active Substance: ONDANSETRON HYDROCHLORIDE
     Dosage: UNK
  19. SIMVASTATIN [Suspect]
     Active Substance: SIMVASTATIN
     Indication: Diffuse large B-cell lymphoma
     Route: 048
     Dates: start: 20130508, end: 20240820
  20. ACETAMINOPHEN [Suspect]
     Active Substance: ACETAMINOPHEN
     Indication: Diffuse large B-cell lymphoma
     Route: 048
     Dates: start: 20190520
  21. ACETAMINOPHEN [Suspect]
     Active Substance: ACETAMINOPHEN
     Indication: Diffuse large B-cell lymphoma
     Dosage: TOTAL DAILY DOSE: 1000 MILLIGRAM, BID
     Route: 048
     Dates: start: 20240617
  22. PLERIXAFOR [Suspect]
     Active Substance: PLERIXAFOR
     Indication: Diffuse large B-cell lymphoma
     Dosage: 20 MILLIGRAM
     Route: 065
     Dates: start: 20240110, end: 20240111
  23. OXETACAINE [Concomitant]
     Active Substance: OXETHAZAINE
     Dosage: UNK
  24. CARMUSTINE [Suspect]
     Active Substance: CARMUSTINE
     Indication: Diffuse large B-cell lymphoma
     Dosage: 400 MILLIGRAM
     Route: 065
     Dates: start: 20240209, end: 20240214
  25. METFORMIN [Concomitant]
     Active Substance: METFORMIN HYDROCHLORIDE
     Dosage: UNK
  26. LOPERAMIDE [Concomitant]
     Active Substance: LOPERAMIDE
     Dosage: UNK
  27. FAMOTIDINE [Concomitant]
     Active Substance: FAMOTIDINE
     Dosage: UNK
  28. RITUXIMAB [Suspect]
     Active Substance: RITUXIMAB
     Indication: Diffuse large B-cell lymphoma
     Dosage: 700 MILLIGRAM
     Route: 065
     Dates: start: 20231116, end: 20231116
  29. RITUXIMAB [Suspect]
     Active Substance: RITUXIMAB
     Indication: Diffuse large B-cell lymphoma
     Dosage: 700 MILLIGRAM
     Route: 065
     Dates: start: 20231207, end: 20231207
  30. RITUXIMAB [Suspect]
     Active Substance: RITUXIMAB
     Indication: Diffuse large B-cell lymphoma
     Dosage: 700 MILLIGRAM
     Route: 065
     Dates: start: 20231229, end: 20231229
  31. CHOLECALCIFEROL [Concomitant]
     Active Substance: CHOLECALCIFEROL
     Dosage: UNK
     Dates: start: 20240208, end: 20240303
  32. PEMBROLIZUMAB [Suspect]
     Active Substance: PEMBROLIZUMAB
     Indication: Diffuse large B-cell lymphoma
     Dosage: 200 MILLIGRAM
     Route: 065
     Dates: start: 20231116, end: 20231116
  33. PEMBROLIZUMAB [Suspect]
     Active Substance: PEMBROLIZUMAB
     Indication: Diffuse large B-cell lymphoma
     Dosage: 200 MILLIGRAM
     Route: 065
     Dates: start: 20231207, end: 20231207
  34. PEMBROLIZUMAB [Suspect]
     Active Substance: PEMBROLIZUMAB
     Indication: Diffuse large B-cell lymphoma
     Dosage: 200 MILLIGRAM
     Route: 065
     Dates: start: 20231229, end: 20231229
  35. NOVORAPID [Concomitant]
     Active Substance: INSULIN ASPART
     Dosage: TOTAL DAILY DOSE: VARIABLE 100 UNITS/ML
     Route: 058
     Dates: start: 20070313, end: 20240303
  36. BUTYLSCOPOLAMINE BROMIDE [Concomitant]
     Active Substance: BUTYLSCOPOLAMINE BROMIDE
     Dosage: UNK
  37. ACYCLOVIR [Concomitant]
     Active Substance: ACYCLOVIR
     Dosage: UNK
  38. CYTARABINE [Suspect]
     Active Substance: CYTARABINE
     Indication: Diffuse large B-cell lymphoma
     Dosage: 720 MILLIGRAM
     Route: 065
     Dates: start: 20240209, end: 20240214
  39. CODEINE PHOSPHATE [Concomitant]
     Active Substance: CODEINE PHOSPHATE
     Dosage: UNK
  40. COTRIMOXAZOLE [Concomitant]
     Active Substance: SULFAMETHOXAZOLE\TRIMETHOPRIM
     Dosage: UNK

REACTIONS (6)
  - Acute respiratory distress syndrome [Not Recovered/Not Resolved]
  - Colitis [Recovered/Resolved with Sequelae]
  - Dyspnoea [Recovered/Resolved]
  - Alanine aminotransferase increased [Not Recovered/Not Resolved]
  - Acute kidney injury [Recovered/Resolved with Sequelae]
  - Mobility decreased [Not Recovered/Not Resolved]

NARRATIVE: CASE EVENT DATE: 20231123
